FAERS Safety Report 6340649-2 (Version None)
Quarter: 2009Q3

REPORT INFORMATION
  Report Type: 
  Country: None (occurrence: None)
  Receive Date: 20090904
  Receipt Date: 20090827
  Transmission Date: 20100115
  Serious: Yes (Other)
  Sender: FDA-Public Use
  Company Number: US-AMGEN-QUU362103

PATIENT
  Sex: Female

DRUGS (1)
  1. ENBREL [Suspect]
     Indication: PSORIASIS
     Route: 058
     Dates: start: 20090120

REACTIONS (5)
  - ADRENAL INSUFFICIENCY [None]
  - ATRIAL FIBRILLATION [None]
  - CONTUSION [None]
  - PSORIASIS [None]
  - SKIN ATROPHY [None]
